FAERS Safety Report 5105675-X (Version None)
Quarter: 2006Q3

REPORT INFORMATION
  Report Type: 
  Country: None (occurrence: None)
  Receive Date: 20060915
  Receipt Date: 20060911
  Transmission Date: 20061208
  Serious: Yes (Death)
  Sender: FDA-Public Use
  Company Number: 2006AC01658

PATIENT

DRUGS (1)
  1. LIGNOCAINE [Suspect]

REACTIONS (2)
  - ACCIDENTAL OVERDOSE [None]
  - INCORRECT ROUTE OF DRUG ADMINISTRATION [None]
